FAERS Safety Report 16394030 (Version 1)
Quarter: 2019Q2

REPORT INFORMATION
  Report Type: Report from Study
  Country: DE (occurrence: DE)
  Receive Date: 20190605
  Receipt Date: 20190605
  Transmission Date: 20190711
  Serious: Yes (Other)
  Sender: FDA-Public Use
  Company Number: DE-ROCHE-2324898

PATIENT
  Age: 53 Year
  Sex: Male
  Weight: 79 kg

DRUGS (5)
  1. FAMPYRA [Concomitant]
     Active Substance: DALFAMPRIDINE
     Dosage: ONGOING
     Route: 048
     Dates: start: 20120105
  2. OCRELIZUMAB. [Suspect]
     Active Substance: OCRELIZUMAB
     Indication: MULTIPLE SCLEROSIS
     Route: 042
     Dates: start: 20180515
  3. SPASMEX [TROSPIUM CHLORIDE] [Concomitant]
     Indication: MUSCLE SPASTICITY
     Route: 048
     Dates: start: 201708
  4. BACLOFEN. [Concomitant]
     Active Substance: BACLOFEN
     Indication: MUSCLE SPASTICITY
     Dosage: ONGOING
     Route: 048
     Dates: start: 20110921
  5. CYMBALTA [Concomitant]
     Active Substance: DULOXETINE HYDROCHLORIDE
     Indication: AFFECT LABILITY
     Dosage: ONGOING
     Route: 048
     Dates: start: 20130916

REACTIONS (1)
  - Microcytic anaemia [Not Recovered/Not Resolved]

NARRATIVE: CASE EVENT DATE: 20190516
